FAERS Safety Report 18852876 (Version 2)
Quarter: 2021Q1

REPORT INFORMATION
  Report Type: Spontaneous
  Country: US (occurrence: US)
  Receive Date: 20210205
  Receipt Date: 20210218
  Transmission Date: 20210420
  Serious: Yes (Other)
  Sender: FDA-Public Use
  Company Number: US-VERO BIOTECH-2106389

PATIENT
  Age: 1 Day

DRUGS (13)
  1. GENOSYL [Suspect]
     Active Substance: NITRIC OXIDE
     Indication: NEONATAL RESPIRATORY DISTRESS SYNDROME
     Route: 055
  2. INSULIN [Concomitant]
     Active Substance: INSULIN NOS
  3. CAFFEINE. [Concomitant]
     Active Substance: CAFFEINE
  4. GENOSYL [Suspect]
     Active Substance: NITRIC OXIDE
  5. MORPHINE SULFATE. [Concomitant]
     Active Substance: MORPHINE SULFATE
  6. TPN [Concomitant]
     Active Substance: AMINO ACIDS\DEXTROSE\ELECTROLYTES NOS\SOYBEAN OIL
  7. GLUCOSE [Concomitant]
     Active Substance: DEXTROSE
  8. HYDROCORTISONE (HYDROCORTISONE ACETATE) [Concomitant]
     Active Substance: HYDROCORTISONE ACETATE
  9. VANCOMYCIN HYDROCHLORIDE. [Concomitant]
     Active Substance: VANCOMYCIN HYDROCHLORIDE
  10. DOPAMINE [Concomitant]
     Active Substance: DOPAMINE HYDROCHLORIDE
  11. DEXTROSE. [Concomitant]
     Active Substance: DEXTROSE
  12. FLUCONAZOLE. [Concomitant]
     Active Substance: FLUCONAZOLE
  13. CEFTAZIDIME. [Concomitant]
     Active Substance: CEFTAZIDIME

REACTIONS (4)
  - Methaemoglobinaemia [Unknown]
  - Incorrect product administration duration [Unknown]
  - Drug level fluctuating [Unknown]
  - Oxygen saturation abnormal [Unknown]

NARRATIVE: CASE EVENT DATE: 20210123
